FAERS Safety Report 21044119 (Version 1)
Quarter: 2022Q3

REPORT INFORMATION
  Report Type: Spontaneous
  Country: US (occurrence: None)
  Receive Date: 20220705
  Receipt Date: 20220705
  Transmission Date: 20221027
  Serious: No
  Sender: FDA-Public Use
  Company Number: None

PATIENT
  Age: 78 Year
  Sex: Female

DRUGS (2)
  1. ENBREL [Suspect]
     Active Substance: ETANERCEPT
     Indication: Rheumatic disorder
     Dosage: FREQUENCY : WEEKLY;?
     Route: 058
     Dates: start: 202202
  2. ENBREL [Suspect]
     Active Substance: ETANERCEPT
     Indication: Polyarthritis

REACTIONS (2)
  - Therapy interrupted [None]
  - Oral herpes [None]
